FAERS Safety Report 4877530-1 (Version None)
Quarter: 2006Q1

REPORT INFORMATION
  Report Type: 
  Country: None (occurrence: None)
  Receive Date: 20060111
  Receipt Date: 20051215
  Transmission Date: 20060701
  Serious: Yes (Other)
  Sender: FDA-Public Use
  Company Number: PHEH2005US13547

PATIENT
  Age: 54 Year
  Sex: Male
  Weight: 83.9 kg

DRUGS (8)
  1. DIOVAN [Suspect]
     Indication: HYPERTENSION
     Dosage: UNK
     Route: 048
     Dates: start: 20051101
  2. CELLCEPT [Suspect]
  3. GENGRAF [Suspect]
     Dosage: UNK
  4. WELLBUTRIN [Suspect]
     Dosage: UNK
  5. LIPITOR [Suspect]
     Dosage: UNK
  6. LUNESTA [Suspect]
     Dosage: UNK
  7. PRILOSEC [Suspect]
     Dosage: UNK
  8. GLUCONATE SODIUM [Suspect]

REACTIONS (2)
  - CARDIAC DISORDER [None]
  - VISUAL ACUITY REDUCED [None]
